FAERS Safety Report 12331990 (Version 2)
Quarter: 2016Q2

REPORT INFORMATION
  Report Type: Spontaneous
  Country: US (occurrence: US)
  Receive Date: 20160504
  Receipt Date: 20160525
  Transmission Date: 20160815
  Serious: No
  Sender: FDA-Public Use
  Company Number: US-PFIZER INC-2016236634

PATIENT
  Age: 32 Month
  Sex: Male
  Weight: 13.61 kg

DRUGS (2)
  1. AZITHROMYCIN ANHYDROUS. [Suspect]
     Active Substance: AZITHROMYCIN ANHYDROUS
     Indication: ATYPICAL PNEUMONIA
     Dosage: 7 ML, DAILY (THE FIRST DAY)
     Route: 048
     Dates: start: 20160426, end: 20160426
  2. AZITHROMYCIN ANHYDROUS. [Suspect]
     Active Substance: AZITHROMYCIN ANHYDROUS
     Dosage: 3.5 ML, DAILY (THE FOLLOWING DAYS)
     Route: 048
     Dates: start: 20160427

REACTIONS (3)
  - Reaction to drug excipients [Unknown]
  - Insomnia [Unknown]
  - Psychomotor hyperactivity [Unknown]

NARRATIVE: CASE EVENT DATE: 20160426
